FAERS Safety Report 15119468 (Version 1)
Quarter: 2018Q3

REPORT INFORMATION
  Report Type: Other
  Country: DE (occurrence: DE)
  Receive Date: 20180709
  Receipt Date: 20180709
  Transmission Date: 20181010
  Serious: Yes (Other)
  Sender: FDA-Public Use
  Company Number: DE-LUPIN PHARMACEUTICALS INC.-2018-04818

PATIENT

DRUGS (1)
  1. SERTRALINE [Suspect]
     Active Substance: SERTRALINE HYDROCHLORIDE
     Indication: WITHDRAWAL SYNDROME
     Dosage: 50 MG, UNK
     Route: 065
     Dates: start: 20170323

REACTIONS (3)
  - Hyperventilation [Recovered/Resolved]
  - Respiratory distress [Unknown]
  - Vestibular disorder [Recovered/Resolved]

NARRATIVE: CASE EVENT DATE: 20171218
